FAERS Safety Report 6475346-6 (Version None)
Quarter: 2009Q4

REPORT INFORMATION
  Report Type: 
  Country: None (occurrence: None)
  Receive Date: 20091204
  Receipt Date: 20091201
  Transmission Date: 20100525
  Serious: Yes (Death, Life-Threatening)
  Sender: FDA-Public Use
  Company Number: AU-JNJFOC-20091200660

PATIENT
  Age: 9 Decade
  Sex: Female

DRUGS (2)
  1. DURAGESIC-100 [Suspect]
     Route: 062
  2. DURAGESIC-100 [Suspect]
     Indication: MESOTHELIOMA
     Route: 062

REACTIONS (2)
  - DEATH [None]
  - LOSS OF CONSCIOUSNESS [None]
